FAERS Safety Report 5257081-5 (Version None)
Quarter: 2007Q1

REPORT INFORMATION
  Report Type: 
  Country: None (occurrence: None)
  Receive Date: 20070307
  Receipt Date: 20070222
  Transmission Date: 20070707
  Serious: Yes (Other)
  Sender: FDA-Public Use
  Company Number: PHNU2007DE00978

PATIENT
  Sex: Male

DRUGS (1)
  1. ZOMETA [Suspect]
     Dosage: 4 MG, UNK
     Dates: start: 20030701, end: 20061101

REACTIONS (1)
  - OSTEONECROSIS [None]
